FAERS Safety Report 9287955 (Version 2)
Quarter: 2013Q2

REPORT INFORMATION
  Report Type: Spontaneous
  Country: DE (occurrence: DE)
  Receive Date: 20130514
  Receipt Date: 20130616
  Transmission Date: 20140414
  Serious: Yes (Other)
  Sender: FDA-Public Use
  Company Number: DE-PFIZER INC-2013147529

PATIENT
  Age: 43 Year
  Sex: Female
  Weight: 69 kg

DRUGS (2)
  1. LYRICA [Suspect]
     Indication: MIGRAINE
     Dosage: 150 MG, 2X/DAY (MORNING AND EVENING)
     Dates: start: 2012
  2. LYRICA [Suspect]
     Dosage: 150 MG, 1X/DAY

REACTIONS (8)
  - Off label use [Unknown]
  - Genital injury [Unknown]
  - Cystitis [Unknown]
  - Impaired work ability [Unknown]
  - Disturbance in attention [Unknown]
  - Impaired driving ability [Unknown]
  - Dizziness [Unknown]
  - Fatigue [Unknown]
